FAERS Safety Report 4522581-X (Version None)
Quarter: 2004Q4

REPORT INFORMATION
  Report Type: 
  Country: None (occurrence: None)
  Receive Date: 20041207
  Receipt Date: 20041119
  Transmission Date: 20050328
  Serious: Yes (Hospitalization)
  Sender: FDA-Public Use
  Company Number: FR_041105270

PATIENT
  Age: 68 Year
  Sex: Male

DRUGS (2)
  1. CIALIS [Suspect]
     Indication: ERECTILE DYSFUNCTION
     Dosage: 10 MG/1 DAY
     Dates: start: 20040917, end: 20040917
  2. JOSIR (TAMSULOSIN HYDROCHLORIDE) [Concomitant]

REACTIONS (2)
  - HAEMORRHAGIC STROKE [None]
  - HEMIPLEGIA [None]
